FAERS Safety Report 6019578-X (Version None)
Quarter: 2008Q4

REPORT INFORMATION
  Report Type: 
  Country: None (occurrence: None)
  Receive Date: 20081224
  Receipt Date: 20081217
  Transmission Date: 20090506
  Serious: Yes (Other)
  Sender: FDA-Public Use
  Company Number: PHHY2008BR32364

PATIENT
  Age: 89 Year
  Sex: Female
  Weight: 82 kg

DRUGS (3)
  1. EXELON [Suspect]
     Indication: DEMENTIA ALZHEIMER'S TYPE
     Dosage: 9 MG
     Route: 062
  2. EXELON [Suspect]
     Indication: PARKINSON'S DISEASE
  3. ASPIRIN [Concomitant]

REACTIONS (5)
  - AGGRESSION [None]
  - COGNITIVE DISORDER [None]
  - HALLUCINATION [None]
  - MEMORY IMPAIRMENT [None]
  - TREMOR [None]
